FAERS Safety Report 11548154 (Version 1)
Quarter: 2015Q3

REPORT INFORMATION
  Report Type: Spontaneous
  Country: RU (occurrence: RU)
  Receive Date: 20150924
  Receipt Date: 20150924
  Transmission Date: 20151125
  Serious: Yes (Other)
  Sender: FDA-Public Use
  Company Number: RU-EISAI MEDICAL RESEARCH-EC-2015-010559

PATIENT
  Age: 59 Year
  Sex: Female
  Weight: 170 kg

DRUGS (1)
  1. HALAVEN [Suspect]
     Active Substance: ERIBULIN MESYLATE
     Indication: BREAST CANCER
     Dosage: UNKNOWN
     Route: 041
     Dates: start: 201508, end: 201508

REACTIONS (1)
  - Myopathy [Not Recovered/Not Resolved]

NARRATIVE: CASE EVENT DATE: 20150821
